FAERS Safety Report 7688011-4 (Version None)
Quarter: 2011Q3

REPORT INFORMATION
  Report Type: 
  Country: None (occurrence: None)
  Receive Date: 20110817
  Receipt Date: 20110811
  Transmission Date: 20111222
  Serious: Yes (Other)
  Sender: FDA-Public Use
  Company Number: US-PFIZER INC-2011185573

PATIENT
  Age: 8 Year
  Sex: Female

DRUGS (2)
  1. PREMARIN [Suspect]
     Indication: VAGINAL INFECTION
  2. PREMARIN [Suspect]
     Indication: OFF LABEL USE
     Dosage: UNK
     Route: 067
     Dates: start: 20030101

REACTIONS (1)
  - PRECOCIOUS PUBERTY [None]
